FAERS Safety Report 25361457 (Version 1)
Quarter: 2025Q2

REPORT INFORMATION
  Report Type: Spontaneous
  Country: US (occurrence: US)
  Receive Date: 20250527
  Receipt Date: 20250527
  Transmission Date: 20250716
  Serious: No
  Sender: ELI LILLY AND COMPANY
  Company Number: US-ELI_LILLY_AND_COMPANY-US202505021400

PATIENT
  Age: 54 Year
  Sex: Male

DRUGS (2)
  1. OLUMIANT [Suspect]
     Active Substance: BARICITINIB
     Indication: Alopecia
     Route: 065
     Dates: start: 20250310
  2. OLUMIANT [Suspect]
     Active Substance: BARICITINIB
     Route: 065

REACTIONS (2)
  - Fatigue [Unknown]
  - Drug ineffective [Unknown]
